FAERS Safety Report 21559600 (Version 1)
Quarter: 2022Q4

REPORT INFORMATION
  Report Type: Spontaneous
  Country: NL (occurrence: NL)
  Receive Date: 20221107
  Receipt Date: 20221107
  Transmission Date: 20230113
  Serious: Yes (Other)
  Sender: FDA-Public Use
  Company Number: NL-MYLANLABS-2022M1121409

PATIENT
  Sex: Female

DRUGS (1)
  1. AZELASTINE [Suspect]
     Active Substance: AZELASTINE
     Indication: Seasonal allergy
     Dosage: UNK
     Route: 045
     Dates: start: 2022

REACTIONS (2)
  - Facial bones fracture [Unknown]
  - Cartilage injury [Unknown]

NARRATIVE: CASE EVENT DATE: 20220101
